FAERS Safety Report 19871236 (Version 1)
Quarter: 2021Q3

REPORT INFORMATION
  Report Type: Spontaneous
  Country: US (occurrence: US)
  Receive Date: 20210922
  Receipt Date: 20210922
  Transmission Date: 20211014
  Serious: No
  Sender: FDA-Public Use
  Company Number: US-BRISTOL-MYERS SQUIBB COMPANY-BMS-2021-096208

PATIENT
  Age: 52 Year
  Sex: Female

DRUGS (1)
  1. ORENCIA [Suspect]
     Active Substance: ABATACEPT
     Indication: RHEUMATIC DISORDER
     Dosage: 750 MG IV AT WEEK 0, 2, 4 THEN Q4 WEEKS THEREAFTER
     Route: 042
     Dates: start: 20210824

REACTIONS (2)
  - Fatigue [Unknown]
  - Nausea [Unknown]
